FAERS Safety Report 13565919 (Version 3)
Quarter: 2017Q2

REPORT INFORMATION
  Report Type: Report from Study
  Country: US (occurrence: US)
  Receive Date: 20170520
  Receipt Date: 20170612
  Transmission Date: 20170830
  Serious: Yes (Hospitalization, Other)
  Sender: FDA-Public Use
  Company Number: US-ROCHE-1916160

PATIENT
  Age: 72 Year
  Sex: Female
  Weight: 58.11 kg

DRUGS (8)
  1. LEVOTHYROXINE. [Concomitant]
     Active Substance: LEVOTHYROXINE
     Dosage: BEEN TAKING FOR YEARS
     Route: 048
     Dates: start: 2013
  2. ONDANSETRAN [Concomitant]
     Active Substance: ONDANSETRON HYDROCHLORIDE
     Indication: VOMITING
     Route: 048
  3. FISH OIL [Concomitant]
     Active Substance: FISH OIL
     Route: 048
     Dates: start: 2015
  4. VITAMIN D3 [Concomitant]
     Active Substance: CHOLECALCIFEROL
     Route: 048
     Dates: start: 2015
  5. ESBRIET [Suspect]
     Active Substance: PIRFENIDONE
     Route: 048
     Dates: start: 201702, end: 20170416
  6. ESBRIET [Suspect]
     Active Substance: PIRFENIDONE
     Indication: IDIOPATHIC PULMONARY FIBROSIS
     Route: 065
     Dates: start: 201611
  7. ESBRIET [Suspect]
     Active Substance: PIRFENIDONE
     Route: 048
     Dates: start: 201702, end: 201705
  8. VITAMIN B12 [Concomitant]
     Active Substance: CYANOCOBALAMIN
     Route: 060
     Dates: start: 2015

REACTIONS (34)
  - Sinus congestion [Recovered/Resolved]
  - Dyspnoea [Recovered/Resolved with Sequelae]
  - Weight decreased [Recovered/Resolved]
  - Choking [Recovered/Resolved]
  - Nausea [Not Recovered/Not Resolved]
  - Dyspnoea [Recovered/Resolved]
  - Ageusia [Not Recovered/Not Resolved]
  - Appetite disorder [Not Recovered/Not Resolved]
  - Heart rate abnormal [Recovered/Resolved]
  - Constipation [Not Recovered/Not Resolved]
  - Decreased appetite [Recovered/Resolved]
  - Oesophageal disorder [Not Recovered/Not Resolved]
  - Constipation [Recovered/Resolved with Sequelae]
  - Hernia [Not Recovered/Not Resolved]
  - Gastrointestinal disorder [Unknown]
  - Vomiting [Recovered/Resolved]
  - Dizziness [Recovered/Resolved with Sequelae]
  - Sinus disorder [Recovering/Resolving]
  - Gastrooesophageal reflux disease [Unknown]
  - Abnormal faeces [Recovered/Resolved with Sequelae]
  - Productive cough [Recovered/Resolved]
  - Insomnia [Not Recovered/Not Resolved]
  - Drug ineffective [Unknown]
  - Pneumonia [Recovering/Resolving]
  - Dyspepsia [Not Recovered/Not Resolved]
  - Dysphagia [Unknown]
  - Decreased appetite [Not Recovered/Not Resolved]
  - Oxygen saturation decreased [Recovered/Resolved with Sequelae]
  - Hiatus hernia [Not Recovered/Not Resolved]
  - Cough [Recovered/Resolved]
  - Hernia [Not Recovered/Not Resolved]
  - Gastric perforation [Not Recovered/Not Resolved]
  - Palpitations [Recovered/Resolved with Sequelae]
  - Feeling abnormal [Unknown]

NARRATIVE: CASE EVENT DATE: 201702
